FAERS Safety Report 5891374-3 (Version None)
Quarter: 2008Q3

REPORT INFORMATION
  Report Type: 
  Country: None (occurrence: None)
  Receive Date: 20080918
  Receipt Date: 20080918
  Transmission Date: 20090109
  Serious: Yes (Other)
  Sender: FDA-Public Use
  Company Number: None

PATIENT
  Sex: Male
  Weight: 87 kg

DRUGS (1)
  1. PROCHLORPERAZINE [Suspect]
     Dosage: 40MG DAILY IV
     Route: 042

REACTIONS (1)
  - FEELING ABNORMAL [None]
